FAERS Safety Report 10573262 (Version 2)
Quarter: 2014Q4

REPORT INFORMATION
  Report Type: Spontaneous
  Country: BR (occurrence: BR)
  Receive Date: 20141110
  Receipt Date: 20141119
  Transmission Date: 20150529
  Serious: Yes (Hospitalization)
  Sender: FDA-Public Use
  Company Number: BR-SA-2014SA151684

PATIENT
  Sex: Male

DRUGS (2)
  1. LANTUS [Suspect]
     Active Substance: INSULIN GLARGINE
     Indication: DIABETES MELLITUS
     Dosage: 3ML CARTRIDGE
     Route: 065
     Dates: start: 2004
  2. DEVICE NOS [Concomitant]
     Active Substance: DEVICE
     Route: 065

REACTIONS (3)
  - Chest pain [Recovered/Resolved]
  - Arterial occlusive disease [Recovered/Resolved]
  - Angina pectoris [Recovered/Resolved]

NARRATIVE: CASE EVENT DATE: 20140421
